FAERS Safety Report 25523666 (Version 1)
Quarter: 2025Q3

REPORT INFORMATION
  Report Type: Spontaneous
  Country: PR (occurrence: None)
  Receive Date: 20250703
  Receipt Date: 20250703
  Transmission Date: 20251021
  Serious: Yes (Life-Threatening)
  Sender: FDA-CTU
  Company Number: None

PATIENT
  Age: 56 Year
  Sex: Male
  Weight: 88.9 kg

DRUGS (1)
  1. ACTEMRA [Suspect]
     Active Substance: TOCILIZUMAB
     Dosage: FREQUENCY : WEEKLY;?
     Route: 058
     Dates: start: 20241001

REACTIONS (3)
  - Rhinorrhoea [None]
  - Gastrooesophageal reflux disease [None]
  - Blood pressure abnormal [None]

NARRATIVE: CASE EVENT DATE: 20241203
